FAERS Safety Report 4299508-1 (Version None)
Quarter: 2004Q1

REPORT INFORMATION
  Report Type: 
  Country: None (occurrence: None)
  Receive Date: 20040217
  Receipt Date: 20040217
  Transmission Date: 20041129
  Serious: Yes (Life-Threatening, Hospitalization)
  Sender: FDA-Public Use
  Company Number: None

PATIENT
  Age: 56 Year
  Sex: Female
  Weight: 68.0396 kg

DRUGS (3)
  1. NARDIL [Suspect]
     Indication: ANXIETY
     Dates: start: 19880501, end: 20040209
  2. NARDIL [Suspect]
     Indication: DEPRESSION
     Dates: start: 19880501, end: 20040209
  3. NARDIL [Suspect]
     Indication: PANIC DISORDER
     Dates: start: 19880501, end: 20040209

REACTIONS (8)
  - ABNORMAL BEHAVIOUR [None]
  - DEPERSONALISATION [None]
  - DEPRESSION [None]
  - FAMILY STRESS [None]
  - LOSS OF EMPLOYMENT [None]
  - PANIC ATTACK [None]
  - PHARMACEUTICAL PRODUCT COMPLAINT [None]
  - SUICIDAL IDEATION [None]
